FAERS Safety Report 5160786-8 (Version None)
Quarter: 2006Q4

REPORT INFORMATION
  Report Type: 
  Country: None (occurrence: None)
  Receive Date: 20061121
  Receipt Date: 20061026
  Transmission Date: 20070319
  Serious: Yes (Life-Threatening)
  Sender: FDA-Public Use
  Company Number: S06-GER-04882-01

PATIENT
  Sex: Female

DRUGS (2)
  1. MONURIL 3000 (FOSMOMYCIN TROMETAMOL) [Suspect]
     Indication: URINARY TRACT INFECTION
     Dosage: 3 G ONCE PO
     Route: 048
  2. ZINC PREPARATION (ZINC) [Suspect]

REACTIONS (2)
  - ANAPHYLACTIC REACTION [None]
  - URINARY TRACT INFECTION [None]
